FAERS Safety Report 18365758 (Version 1)
Quarter: 2020Q4

REPORT INFORMATION
  Report Type: Spontaneous
  Country: DK (occurrence: DK)
  Receive Date: 20201009
  Receipt Date: 20201009
  Transmission Date: 20210114
  Serious: Yes (Disabling, Other)
  Sender: FDA-Public Use
  Company Number: DK-AMGEN-DNKSP2020159881

PATIENT
  Age: 61 Year
  Sex: Female

DRUGS (1)
  1. PROLIA [Suspect]
     Active Substance: DENOSUMAB
     Indication: OSTEOPOROSIS
     Dosage: 60 MILLIGRAM PER MILLILITRE, Q6MO
     Route: 058
     Dates: start: 20170130, end: 201801

REACTIONS (7)
  - Myalgia [Unknown]
  - Bone pain [Unknown]
  - Spinal compression fracture [Recovering/Resolving]
  - Sinusitis [Unknown]
  - Rebound effect [Unknown]
  - Medication error [Recovered/Resolved]
  - Spinal pain [Not Recovered/Not Resolved]

NARRATIVE: CASE EVENT DATE: 2018
